FAERS Safety Report 4773349-0 (Version None)
Quarter: 2005Q3

REPORT INFORMATION
  Report Type: 
  Country: None (occurrence: None)
  Receive Date: 20050916
  Receipt Date: 20050912
  Transmission Date: 20060218
  Serious: Yes (Hospitalization)
  Sender: FDA-Public Use
  Company Number: 2005126864

PATIENT
  Age: 52 Year
  Sex: Female

DRUGS (15)
  1. ZYRTEC-D 12 HOUR [Suspect]
     Indication: HYPERSENSITIVITY
     Dosage: 2 IN 1 D
  2. ZYRTEC-D 12 HOUR [Suspect]
     Indication: SINUS DISORDER
     Dosage: 2 IN 1 D
  3. MAVIX (TRANDOLAPRIL) [Concomitant]
  4. HYDROCHLOROTHIAZIDE [Concomitant]
  5. PRAVACHOL [Suspect]
  6. TRANXENE [Concomitant]
  7. TOPOMAX (TOPIRAMATE) [Concomitant]
  8. BACTRIM [Concomitant]
  9. NORCO [Concomitant]
  10. ELMIRON [Concomitant]
  11. PRILOSEC [Concomitant]
  12. TRIMETHOPRIM [Concomitant]
  13. ELAVIL [Concomitant]
  14. CYMBALTA [Concomitant]
  15. STADOL [Concomitant]

REACTIONS (4)
  - BLADDER DISORDER [None]
  - BLOOD GLUCOSE DECREASED [None]
  - BLOOD GLUCOSE INCREASED [None]
  - DEHYDRATION [None]
